FAERS Safety Report 12378270 (Version 1)
Quarter: 2016Q2

REPORT INFORMATION
  Report Type: Spontaneous
  Country: US (occurrence: US)
  Receive Date: 20160517
  Receipt Date: 20160517
  Transmission Date: 20160815
  Serious: No
  Sender: FDA-Public Use
  Company Number: US-JNJFOC-20160408060

PATIENT
  Age: 80 Year
  Sex: Female
  Weight: 52.16 kg

DRUGS (1)
  1. TYLENOL REGULAR STRENGTH [Suspect]
     Active Substance: ACETAMINOPHEN
     Indication: MUSCLE RELAXANT THERAPY
     Dosage: SINCE SEPTEMBER-2 TABLETS AT NIGHT
     Route: 048
     Dates: end: 20160406

REACTIONS (4)
  - Therapeutic response unexpected [Unknown]
  - Foreign body [Recovered/Resolved]
  - Off label use [Unknown]
  - Product use issue [Unknown]
